FAERS Safety Report 8291192-5 (Version None)
Quarter: 2012Q2

REPORT INFORMATION
  Report Type: 
  Country: None (occurrence: None)
  Receive Date: 20120417
  Receipt Date: 20120403
  Transmission Date: 20120825
  Serious: Yes (Hospitalization)
  Sender: FDA-Public Use
  Company Number: DE-TEVA-325251GER

PATIENT
  Sex: Female
  Weight: 86 kg

DRUGS (9)
  1. TRASTUZUMAB [Suspect]
     Indication: BREAST CANCER
     Dosage: 688 MILLIGRAM;
     Route: 042
     Dates: start: 20120227, end: 20120229
  2. PANTOPRAZOLE [Concomitant]
  3. DOXORUBICIN HCL [Suspect]
     Dosage: 15 MG/M2;
     Route: 042
     Dates: start: 20120305
  4. LAPATINIB [Suspect]
     Indication: BREAST CANCER
     Dosage: 750 MILLIGRAM;
     Route: 048
     Dates: start: 20120227
  5. NEUPOGEN [Concomitant]
     Dosage: 30000 IU (INTERNATIONAL UNIT);
     Route: 042
     Dates: start: 20120228, end: 20120303
  6. TRASTUZUMAB [Suspect]
     Dosage: 688 MILLIGRAM;
     Route: 042
     Dates: start: 20120319
  7. PACLITAXEL [Suspect]
     Dosage: 60 MG/M2;
     Route: 042
     Dates: start: 20120305
  8. DOXORUBICIN HCL [Suspect]
     Indication: BREAST CANCER
     Dosage: 38 MILLIGRAM;
     Route: 042
     Dates: start: 20120227, end: 20120229
  9. PACLITAXEL [Suspect]
     Indication: BREAST CANCER
     Dosage: 151 MILLIGRAM;
     Route: 042
     Dates: start: 20120227, end: 20120229

REACTIONS (1)
  - THROMBOPHLEBITIS [None]
